FAERS Safety Report 6089720-3 (Version None)
Quarter: 2009Q1

REPORT INFORMATION
  Report Type: 
  Country: None (occurrence: None)
  Receive Date: 20090202
  Receipt Date: 20090202
  Transmission Date: 20090719
  Serious: No
  Sender: FDA-Public Use
  Company Number: None

PATIENT
  Age: 31 Year
  Sex: Male
  Weight: 72.5755 kg

DRUGS (1)
  1. OPTIVAR [Suspect]
     Indication: EYE PRURITUS
     Dosage: ONE DROP ONCE A DAY OPHTHALMIC 4-5 MONTHS
     Route: 047

REACTIONS (2)
  - DRY EYE [None]
  - EYE DISORDER [None]
